FAERS Safety Report 25417921 (Version 2)
Quarter: 2025Q2

REPORT INFORMATION
  Report Type: Spontaneous
  Country: BR (occurrence: BR)
  Receive Date: 20250610
  Receipt Date: 20250616
  Transmission Date: 20250717
  Serious: Yes (Life-Threatening, Hospitalization, Other)
  Sender: PFIZER
  Company Number: BR-PFIZER INC-PV202500069126

PATIENT
  Age: 61 Year
  Sex: Female

DRUGS (4)
  1. METHYLPREDNISOLONE SODIUM SUCCINATE [Suspect]
     Active Substance: METHYLPREDNISOLONE SODIUM SUCCINATE
     Indication: Castleman^s disease
     Dosage: 1 G, DAILY (FOR 3 CONSECUTIVE DAYS)
     Route: 042
  2. RITUXIMAB [Suspect]
     Active Substance: RITUXIMAB
     Indication: Castleman^s disease
  3. TOCILIZUMAB [Suspect]
     Active Substance: TOCILIZUMAB
     Indication: Castleman^s disease
     Dosage: 8 MG/KG, WEEKLY (8MG/KG/DOSE), (4 DOSES)
  4. TOCILIZUMAB [Suspect]
     Active Substance: TOCILIZUMAB
     Dosage: UNK, EVERY 3 WEEKS (1 DOSE)

REACTIONS (2)
  - Multiple organ dysfunction syndrome [Recovered/Resolved]
  - Off label use [Unknown]
